FAERS Safety Report 23921844 (Version 2)
Quarter: 2024Q3

REPORT INFORMATION
  Report Type: Spontaneous
  Country: FR (occurrence: FR)
  Receive Date: 20240530
  Receipt Date: 20240827
  Transmission Date: 20241017
  Serious: Yes (Other)
  Sender: PFIZER
  Company Number: None

PATIENT
  Age: 63 Year
  Sex: Male
  Weight: 75 kg

DRUGS (2)
  1. LINEZOLID [Suspect]
     Active Substance: LINEZOLID
     Indication: Intervertebral discitis
     Dosage: 600 MG, 2X/DAY
     Route: 048
     Dates: start: 20240511, end: 20240515
  2. COTRIMOXAZOLE [Suspect]
     Active Substance: SULFAMETHOXAZOLE\TRIMETHOPRIM
     Indication: Intervertebral discitis
     Dosage: 1 DF, 2X/DAY
     Route: 048
     Dates: start: 20240513, end: 20240516

REACTIONS (1)
  - Gouty arthritis [Recovered/Resolved]

NARRATIVE: CASE EVENT DATE: 20240514
